FAERS Safety Report 5705315-2 (Version None)
Quarter: 2008Q2

REPORT INFORMATION
  Report Type: 
  Country: None (occurrence: None)
  Receive Date: 20080410
  Receipt Date: 20080401
  Transmission Date: 20081010
  Serious: Yes (Hospitalization)
  Sender: FDA-Public Use
  Company Number: 2008-02186

PATIENT
  Age: 12 Year
  Sex: Male
  Weight: 43 kg

DRUGS (4)
  1. FIORICET [Suspect]
     Indication: SPINAL OPERATION
     Dosage: 3000 MG, (70 MG/KG) OVER 24 H, RECTAL; 3000 MG (MAX 4650 MG, 108 MG/KG) X 5D, RECTAL
     Route: 054
  2. FIORICET [Suspect]
     Indication: SPINAL OPERATION
     Dosage: 3000 MG, (70 MG/KG) OVER 24 H, RECTAL; 3000 MG (MAX 4650 MG, 108 MG/KG) X 5D, RECTAL
     Route: 054
  3. MORPHINE [Concomitant]
  4. CEFAZOLIN [Concomitant]

REACTIONS (1)
  - HEPATOTOXICITY [None]
